FAERS Safety Report 25711696 (Version 2)
Quarter: 2025Q3

REPORT INFORMATION
  Report Type: Spontaneous
  Country: CA (occurrence: CA)
  Receive Date: 20250821
  Receipt Date: 20250922
  Transmission Date: 20251020
  Serious: Yes (Hospitalization, Congenital Anomaly, Other)
  Sender: VERTEX
  Company Number: CA-VERTEX PHARMACEUTICALS DOOEL SKOPJE-2025-012388

PATIENT
  Sex: Male
  Weight: 5 kg

DRUGS (4)
  1. TRIKAFTA [Suspect]
     Active Substance: ELEXACAFTOR\IVACAFTOR\TEZACAFTOR
     Indication: Cystic fibrosis
     Route: 063
  2. BUPROPION [Concomitant]
     Active Substance: BUPROPION
  3. CREON [Concomitant]
     Active Substance: PANCRELIPASE AMYLASE\PANCRELIPASE LIPASE\PANCRELIPASE PROTEASE
  4. ESCITALOPRAM [Concomitant]
     Active Substance: ESCITALOPRAM OXALATE

REACTIONS (6)
  - Failure to thrive [Recovered/Resolved]
  - Tethered oral tissue [Recovered/Resolved]
  - Gastrooesophageal reflux disease [Unknown]
  - Infantile spitting up [Unknown]
  - Exposure via breast milk [Unknown]
  - Alanine aminotransferase increased [Recovering/Resolving]

NARRATIVE: CASE EVENT DATE: 20250101
